FAERS Safety Report 12213510 (Version 3)
Quarter: 2016Q2

REPORT INFORMATION
  Report Type: Spontaneous
  Country: US (occurrence: US)
  Receive Date: 20160328
  Receipt Date: 20160406
  Transmission Date: 20160815
  Serious: Yes (Other)
  Sender: FDA-Public Use
  Company Number: US-JNJFOC-20160314135

PATIENT
  Sex: Female

DRUGS (3)
  1. BENADRYL [Suspect]
     Active Substance: DIPHENHYDRAMINE HYDROCHLORIDE
     Indication: FEELING HOT
     Dosage: TOOK BENADRYL ALL DAY
     Route: 048
     Dates: start: 20160312
  2. BENADRYL [Suspect]
     Active Substance: DIPHENHYDRAMINE HYDROCHLORIDE
     Indication: CHEMICAL INJURY
     Dosage: TOOK BENADRYL ALL DAY
     Route: 048
     Dates: start: 20160312
  3. NEUTROGENA OIL FREE ACNE WASH [Suspect]
     Active Substance: SALICYLIC ACID
     Indication: PRODUCT USED FOR UNKNOWN INDICATION
     Dosage: FIRST TIME USING THE PRODUCT
     Route: 065

REACTIONS (4)
  - Eye swelling [Unknown]
  - Off label use [Unknown]
  - Swelling face [Unknown]
  - Product use issue [Unknown]

NARRATIVE: CASE EVENT DATE: 20160312
